FAERS Safety Report 23523647 (Version 1)
Quarter: 2024Q1

REPORT INFORMATION
  Report Type: Spontaneous
  Country: IT (occurrence: IT)
  Receive Date: 20240214
  Receipt Date: 20240214
  Transmission Date: 20240409
  Serious: Yes (Other)
  Sender: FDA-Public Use
  Company Number: None

PATIENT
  Age: 61 Year
  Sex: Male

DRUGS (2)
  1. BEVACIZUMAB [Suspect]
     Active Substance: BEVACIZUMAB
     Indication: Rectal adenocarcinoma
     Dosage: 420 MG
     Route: 042
     Dates: start: 20230309, end: 20230309
  2. LONSURF [Suspect]
     Active Substance: TIPIRACIL HYDROCHLORIDE\TRIFLURIDINE
     Indication: Rectal adenocarcinoma
     Dosage: 20 MG
     Route: 048
     Dates: start: 20230309, end: 20230309

REACTIONS (2)
  - Hyperbilirubinaemia [Recovered/Resolved]
  - Amylase increased [Not Recovered/Not Resolved]

NARRATIVE: CASE EVENT DATE: 20230321
